FAERS Safety Report 14157823 (Version 2)
Quarter: 2018Q1

REPORT INFORMATION
  Report Type: Report from Study
  Country: DE (occurrence: DE)
  Receive Date: 20171103
  Receipt Date: 20180308
  Transmission Date: 20180508
  Serious: Yes (Other)
  Sender: FDA-Public Use
  Company Number: DE-ALIMERA SCIENCES LIMITED-DE-IL-2017-003803

PATIENT

DRUGS (2)
  1. ASPIRIN. [Concomitant]
     Active Substance: ASPIRIN
     Indication: HYPERTENSION
  2. ILUVIEN [Suspect]
     Active Substance: FLUOCINOLONE ACETONIDE
     Indication: DIABETIC RETINAL OEDEMA
     Dosage: 0.25 ?G, QD, RIGHT EYE
     Route: 031
     Dates: start: 20160622

REACTIONS (5)
  - Cataract [Recovered/Resolved]
  - Optic disc disorder [Recovering/Resolving]
  - Cataract operation [Recovered/Resolved]
  - Optic nerve cupping [Recovering/Resolving]
  - Cataract operation [Recovered/Resolved]

NARRATIVE: CASE EVENT DATE: 20161213
